FAERS Safety Report 9646179 (Version 1)
Quarter: 2013Q4

REPORT INFORMATION
  Report Type: Spontaneous
  Country: GB (occurrence: None)
  Receive Date: 20131024
  Receipt Date: 20131024
  Transmission Date: 20140711
  Serious: Yes (Other)
  Sender: FDA-Public Use
  Company Number: 2007060464

PATIENT
  Age: 48 Year
  Sex: Male
  Weight: 78 kg

DRUGS (3)
  1. PROPOFOL [Suspect]
     Indication: INDUCTION OF ANAESTHESIA
     Dosage: 200 MG, 3 IN 1 D
     Route: 040
     Dates: start: 20070530, end: 20070530
  2. FENTANYL (FENTANYL) (FENTANYL) [Suspect]
     Indication: ANAESTHESIA
     Route: 042
     Dates: start: 20070530, end: 20070530
  3. CHAMPIX [Suspect]
     Indication: PRODUCT USED FOR UNKNOWN INDICATION
     Route: 048
     Dates: start: 20130514

REACTIONS (4)
  - Apnoea [None]
  - Anxiety [None]
  - Drug interaction [None]
  - Substance use [None]
